FAERS Safety Report 9464511 (Version 3)
Quarter: 2013Q3

REPORT INFORMATION
  Report Type: Spontaneous
  Country: CA (occurrence: CA)
  Receive Date: 20130819
  Receipt Date: 20130904
  Transmission Date: 20140515
  Serious: Yes (Hospitalization, Other)
  Sender: FDA-Public Use
  Company Number: CA-BAXTER-2013BAX031844

PATIENT
  Sex: Male

DRUGS (2)
  1. DIANEAL PD4 SOLUTION WITH 1.5% DEXTROSE AND 2.5 MEQ/L CALCIUM [Suspect]
     Indication: PERITONEAL DIALYSIS
     Route: 033
     Dates: start: 2009
  2. INSULIN [Concomitant]
     Indication: DIABETES MELLITUS

REACTIONS (7)
  - Dysstasia [Recovered/Resolved]
  - Cerebrovascular accident [Unknown]
  - Asthenia [Recovered/Resolved]
  - Fall [Recovered/Resolved]
  - Hypotension [Recovered/Resolved]
  - Blood potassium decreased [Recovered/Resolved]
  - Blood sodium decreased [Recovered/Resolved]
